FAERS Safety Report 21448077 (Version 1)
Quarter: 2022Q4

REPORT INFORMATION
  Report Type: Spontaneous
  Country: US (occurrence: None)
  Receive Date: 20221011
  Receipt Date: 20221011
  Transmission Date: 20230113
  Serious: No
  Sender: FDA-Public Use
  Company Number: None

PATIENT
  Age: 15 Year
  Sex: Female

DRUGS (1)
  1. HUMIRA [Suspect]
     Active Substance: ADALIMUMAB
     Indication: Crohn^s disease
     Dosage: 80MG PEN ON DAY 15 UNDER THE SKIN
     Route: 058
     Dates: start: 20220916

REACTIONS (4)
  - Device connection issue [None]
  - Device leakage [None]
  - Drug dose omission by device [None]
  - Product quality issue [None]

NARRATIVE: CASE EVENT DATE: 20221010
